FAERS Safety Report 15955547 (Version 3)
Quarter: 2019Q1

REPORT INFORMATION
  Report Type: Spontaneous
  Country: JP (occurrence: JP)
  Receive Date: 20190213
  Receipt Date: 20190213
  Transmission Date: 20190417
  Serious: Yes (Hospitalization)
  Sender: FDA-Public Use
  Company Number: PHHY2019JP030297

PATIENT
  Age: 63 Year
  Sex: Female

DRUGS (2)
  1. PREDNISOLONE. [Suspect]
     Active Substance: PREDNISOLONE
     Indication: SYSTEMIC LUPUS ERYTHEMATOSUS
     Dosage: 15 MG, QD
     Route: 065
  2. TACROLIMUS. [Suspect]
     Active Substance: TACROLIMUS
     Indication: SYSTEMIC LUPUS ERYTHEMATOSUS
     Route: 065

REACTIONS (5)
  - Disseminated cryptococcosis [Recovering/Resolving]
  - Erythema [Recovering/Resolving]
  - Cellulitis [Recovering/Resolving]
  - Idiopathic interstitial pneumonia [Recovering/Resolving]
  - Product use in unapproved indication [Unknown]
